FAERS Safety Report 7647582-4 (Version None)
Quarter: 2011Q3

REPORT INFORMATION
  Report Type: 
  Country: None (occurrence: None)
  Receive Date: 20110801
  Receipt Date: 20110721
  Transmission Date: 20111222
  Serious: Yes (Other)
  Sender: FDA-Public Use
  Company Number: JM-JNJFOC-20110400110

PATIENT
  Age: 75 Year
  Sex: Female

DRUGS (1)
  1. TRAMADOL HYDROCHLORIDE/ACETAMINOPHEN [Suspect]
     Indication: NEURALGIA
     Dosage: 3 TIMES A DAY
     Route: 065

REACTIONS (2)
  - DISORIENTATION [None]
  - CONFUSIONAL STATE [None]
